FAERS Safety Report 7966414-8 (Version None)
Quarter: 2011Q4

REPORT INFORMATION
  Report Type: 
  Country: None (occurrence: None)
  Receive Date: 20111208
  Receipt Date: 20111130
  Transmission Date: 20120403
  Serious: Yes (Death, Other)
  Sender: FDA-Public Use
  Company Number: AT-ROCHE-1017931

PATIENT
  Sex: Female

DRUGS (2)
  1. XELODA [Suspect]
     Indication: BREAST CANCER
     Route: 065
  2. MEVIR [Interacting]
     Indication: PSORIASIS
     Route: 065

REACTIONS (4)
  - SEPSIS [None]
  - NEUTROPENIA [None]
  - DRUG INTERACTION [None]
  - STOMATITIS [None]
